FAERS Safety Report 6063297-0 (Version None)
Quarter: 2009Q1

REPORT INFORMATION
  Report Type: 
  Country: None (occurrence: None)
  Receive Date: 20090203
  Receipt Date: 20090126
  Transmission Date: 20090719
  Serious: Yes (Other)
  Sender: FDA-Public Use
  Company Number: US-ABBOTT-09P-163-0500247-00

PATIENT
  Age: 50 Year
  Sex: Male

DRUGS (8)
  1. TRICOR [Suspect]
     Indication: HYPERLIPIDAEMIA
     Dates: start: 20070101
  2. LIPITOR [Concomitant]
     Indication: HYPERLIPIDAEMIA
  3. LISINOPRIL [Concomitant]
     Indication: HYPERTENSION
  4. THYROID TAB [Concomitant]
     Indication: HYPOTHYROIDISM
  5. GLUCOPHAGE [Concomitant]
     Indication: TYPE 2 DIABETES MELLITUS
  6. METOPROLOL TARTRATE [Concomitant]
     Indication: HYPERTENSION
  7. PRANDIL [Concomitant]
     Indication: TYPE 2 DIABETES MELLITUS
  8. MULTIPLE SUPPLEMENTS [Concomitant]
     Indication: VITAMIN SUPPLEMENTATION
     Dosage: UNKNOWN

REACTIONS (6)
  - BLADDER CANCER [None]
  - BLOOD GLUCOSE INCREASED [None]
  - C-REACTIVE PROTEIN INCREASED [None]
  - GLYCOSYLATED HAEMOGLOBIN INCREASED [None]
  - RENAL CANCER METASTATIC [None]
  - URINE ANALYSIS ABNORMAL [None]
